FAERS Safety Report 25767848 (Version 1)
Quarter: 2025Q3

REPORT INFORMATION
  Report Type: Spontaneous
  Country: US (occurrence: None)
  Receive Date: 20250905
  Receipt Date: 20250905
  Transmission Date: 20251021
  Serious: Yes (Other)
  Sender: FDA-CTU
  Company Number: None

PATIENT
  Age: 58 Year
  Sex: Female
  Weight: 73.48 kg

DRUGS (2)
  1. LEVOTHYROXINE SODIUM [Suspect]
     Active Substance: LEVOTHYROXINE SODIUM
     Indication: Hypothyroidism
     Dosage: 125 MCG TAB ONCE DILY ORAL
     Route: 048
     Dates: start: 20230714, end: 20250817
  2. LEVOTHYROXINE [Suspect]
     Active Substance: LEVOTHYROXINE

REACTIONS (5)
  - Palpitations [None]
  - Malaise [None]
  - Feeling jittery [None]
  - Alopecia [None]
  - Fatigue [None]

NARRATIVE: CASE EVENT DATE: 20250818
